FAERS Safety Report 5601966-4 (Version None)
Quarter: 2008Q1

REPORT INFORMATION
  Report Type: 
  Country: None (occurrence: None)
  Receive Date: 20080125
  Receipt Date: 20080118
  Transmission Date: 20080703
  Serious: Yes (Other)
  Sender: FDA-Public Use
  Company Number: HQWYE100514JUL04

PATIENT
  Sex: Female
  Weight: 646.95 kg

DRUGS (5)
  1. PREMPRO [Suspect]
  2. MEDROXYPROGESTERONE ACETATE [Suspect]
  3. PROVERA [Suspect]
  4. PREMARIN [Suspect]
  5. MEDROXYPROGESTERONE [Suspect]

REACTIONS (1)
  - BREAST CANCER METASTATIC [None]
